FAERS Safety Report 10713172 (Version 1)
Quarter: 2015Q1

REPORT INFORMATION
  Report Type: Spontaneous
  Country: US (occurrence: None)
  Receive Date: 20150114
  Receipt Date: 20150114
  Transmission Date: 20150721
  Serious: Yes (Hospitalization)
  Sender: FDA-Public Use
  Company Number: None

PATIENT
  Age: 21 Year
  Sex: Male
  Weight: 72.58 kg

DRUGS (1)
  1. VEREGEN [Suspect]
     Active Substance: SINECATECHINS
     Indication: MOLLUSCUM CONTAGIOSUM
     Dates: start: 20141229, end: 20150102

REACTIONS (4)
  - Pruritus [None]
  - Urticaria [None]
  - Irritability [None]
  - Hypersensitivity [None]

NARRATIVE: CASE EVENT DATE: 20150108
